FAERS Safety Report 4298954-X (Version None)
Quarter: 2004Q1

REPORT INFORMATION
  Report Type: 
  Country: None (occurrence: None)
  Receive Date: 20040219
  Receipt Date: 20040211
  Transmission Date: 20041129
  Serious: Yes (Other)
  Sender: FDA-Public Use
  Company Number: PHRM2004FR00832

PATIENT
  Age: 68 Year
  Sex: Female

DRUGS (1)
  1. TAREG [Suspect]
     Route: 048

REACTIONS (1)
  - SLEEP APNOEA SYNDROME [None]
